FAERS Safety Report 23563841 (Version 2)
Quarter: 2024Q1

REPORT INFORMATION
  Report Type: Report from Study
  Country: US (occurrence: US)
  Receive Date: 20240226
  Receipt Date: 20240321
  Transmission Date: 20240409
  Serious: Yes (Hospitalization)
  Sender: FDA-Public Use
  Company Number: US-TEVA-VS-3159195

PATIENT
  Age: 17 Year
  Sex: Male
  Weight: 84 kg

DRUGS (26)
  1. METHOTREXATE [Suspect]
     Active Substance: METHOTREXATE
     Indication: B-cell type acute leukaemia
     Dosage: Q7D
     Route: 048
     Dates: end: 20230811
  2. VINCRISTINE [Suspect]
     Active Substance: VINCRISTINE
     Indication: B-cell type acute leukaemia
     Route: 042
  3. HEPARIN [Concomitant]
     Active Substance: HEPARIN SODIUM
     Dates: start: 20220902
  4. COLLAGENASE [Concomitant]
     Active Substance: COLLAGENASE CLOSTRIDIUM HISTOLYTICUM
     Dates: start: 20221001
  5. KETAMINE [Concomitant]
     Active Substance: KETAMINE
     Dates: start: 20220902
  6. DOCUSATE [Concomitant]
     Active Substance: DOCUSATE
     Dates: start: 20220927
  7. BACITRACIN [Concomitant]
     Active Substance: BACITRACIN
     Dates: start: 20220927
  8. CETIRIZINE [Concomitant]
     Active Substance: CETIRIZINE HYDROCHLORIDE
     Dates: start: 20220925
  9. MERCAPTOPURINE [Suspect]
     Active Substance: MERCAPTOPURINE
     Indication: B-cell type acute leukaemia
     Dosage: QHS
     Route: 048
     Dates: end: 20230811
  10. ONDANSETRON [Concomitant]
     Active Substance: ONDANSETRON
     Dates: start: 20220901
  11. ACETAMINOPHEN [Concomitant]
     Active Substance: ACETAMINOPHEN
     Dates: start: 20220830
  12. SALINE [Concomitant]
     Active Substance: SODIUM CHLORIDE
     Dates: start: 20220830
  13. DEXTROSE\SODIUM CHLORIDE [Concomitant]
     Active Substance: DEXTROSE\SODIUM CHLORIDE
     Dosage: SODIUM CHLORIDE 0.9% + DEXTROSE 5%
     Dates: start: 20220830
  14. MIDAZOLAM [Concomitant]
     Active Substance: MIDAZOLAM
     Dates: start: 20220830
  15. PROPOFOL [Concomitant]
     Active Substance: PROPOFOL
     Dates: start: 20220830
  16. MIRALAX [Concomitant]
     Active Substance: POLYETHYLENE GLYCOL 3350
     Dates: start: 20220907
  17. DIPHENHYDRAMINE [Concomitant]
     Active Substance: DIPHENHYDRAMINE
     Dates: start: 20220905
  18. HYDROCORTISONE [Concomitant]
     Active Substance: HYDROCORTISONE
     Dates: start: 20220905
  19. FAMOTIDINE [Concomitant]
     Active Substance: FAMOTIDINE
     Dates: start: 20220901
  20. LIDOCAINE [Concomitant]
     Active Substance: LIDOCAINE
     Dates: start: 20220902
  21. BACTRIM [Concomitant]
     Active Substance: SULFAMETHOXAZOLE\TRIMETHOPRIM
     Dates: start: 20221008
  22. LORAZEPAM [Concomitant]
     Active Substance: LORAZEPAM
     Dates: start: 20221105
  23. CHLORHEXIDINE [Concomitant]
     Active Substance: CHLORHEXIDINE\CHLORHEXIDINE GLUCONATE
     Dates: start: 20221104
  24. DEXTROMETHORPHAN BIOGARAN [Concomitant]
     Dates: start: 20221110
  25. DRONABINOL [Concomitant]
     Active Substance: DRONABINOL
     Dates: start: 20221105
  26. METHOTREXATE [Suspect]
     Active Substance: METHOTREXATE
     Indication: B-cell type acute leukaemia
     Route: 037

REACTIONS (2)
  - Hyperbilirubinaemia [Recovered/Resolved with Sequelae]
  - Neutropenia [Recovered/Resolved]

NARRATIVE: CASE EVENT DATE: 20230811
